FAERS Safety Report 8667338 (Version 2)
Quarter: 2013Q4

REPORT INFORMATION
  Report Type: Spontaneous
  Country: US (occurrence: None)
  Receive Date: 20120629
  Receipt Date: 20131223
  Transmission Date: 20140711
  Serious: Yes (Other)
  Sender: FDA-Public Use
  Company Number: 217985

PATIENT
  Age: 64 Year
  Sex: Female

DRUGS (5)
  1. PICATO [Suspect]
     Indication: ACTINIC KERATOSIS
     Dates: start: 20120607, end: 20120608
  2. PICATO [Suspect]
     Indication: EYELID EXFOLIATION
     Dates: start: 20120607, end: 20120608
  3. PICATO [Suspect]
     Indication: SKIN FISSURES
     Dates: start: 20120607, end: 20120608
  4. CRESTOR [Concomitant]
  5. SYNTHROID [Concomitant]

REACTIONS (11)
  - Skin ulcer [None]
  - Scab [None]
  - Pain [None]
  - Madarosis [None]
  - Visual impairment [None]
  - Application site ulcer [None]
  - Application site scab [None]
  - Drug administered at inappropriate site [None]
  - Application site burn [None]
  - Application site vesicles [None]
  - Application site pain [None]
